FAERS Safety Report 13329401 (Version 1)
Quarter: 2017Q1

REPORT INFORMATION
  Report Type: Spontaneous
  Country: GB (occurrence: GB)
  Receive Date: 20170313
  Receipt Date: 20170313
  Transmission Date: 20170428
  Serious: Yes (Hospitalization, Other)
  Sender: FDA-Public Use
  Company Number: GB-JNJFOC-20170311269

PATIENT
  Age: 33 Year
  Sex: Female
  Weight: 75 kg

DRUGS (7)
  1. FERROUS FUMARATE [Concomitant]
     Active Substance: FERROUS FUMARATE
     Dosage: DOSE: 210 (UNITS UNSPECIFIED)
     Route: 065
     Dates: start: 20170217
  2. PARACETAMOL [Concomitant]
     Active Substance: ACETAMINOPHEN
     Dosage: 500.0 (UNITS UNSPECIFIED)
     Route: 065
     Dates: start: 20161214
  3. FERROUS FUMARATE [Concomitant]
     Active Substance: FERROUS FUMARATE
     Dosage: DOSE: 210 (UNITS UNSPECIFIED)
     Route: 065
     Dates: start: 20161214
  4. MORPHINE SULPHATE [Concomitant]
     Active Substance: MORPHINE SULFATE
     Dosage: DOSE: 10 (UNITS UNSPECIFIED)
     Route: 065
     Dates: start: 20161214
  5. FERROUS FUMARATE [Concomitant]
     Active Substance: FERROUS FUMARATE
     Dosage: DOSE: 210 (UNITS UNSPECIFIED)
     Route: 065
     Dates: start: 20170112
  6. CILEST [Suspect]
     Active Substance: ETHINYL ESTRADIOL\NORGESTIMATE
     Indication: CONTRACEPTION
     Route: 065
  7. FERROUS FUMARATE [Concomitant]
     Active Substance: FERROUS FUMARATE
     Dosage: DOSE: 210 (UNITS UNSPECIFIED)
     Route: 065
     Dates: start: 20170219

REACTIONS (4)
  - Multiple endocrine neoplasia [Not Recovered/Not Resolved]
  - Vomiting [Not Recovered/Not Resolved]
  - Liver function test abnormal [Not Recovered/Not Resolved]
  - Abdominal pain upper [Not Recovered/Not Resolved]

NARRATIVE: CASE EVENT DATE: 20161120
